FAERS Safety Report 7119139-5 (Version None)
Quarter: 2010Q4

REPORT INFORMATION
  Report Type: 
  Country: None (occurrence: None)
  Receive Date: 20101123
  Receipt Date: 20100315
  Transmission Date: 20110411
  Serious: No
  Sender: FDA-Public Use
  Company Number: US-MYLANLABS-2010S1002464

PATIENT
  Age: 77 Year
  Sex: Female
  Weight: 77.11 kg

DRUGS (7)
  1. AMLODIPINE BESYLATE [Suspect]
     Indication: BLOOD PRESSURE INCREASED
     Route: 048
     Dates: start: 20100203, end: 20100204
  2. AMLODIPINE BESYLATE [Suspect]
     Route: 048
     Dates: start: 20100205, end: 20100205
  3. SYNTHROID [Concomitant]
     Indication: THYROIDECTOMY
     Route: 048
  4. ALLOPURINOL [Concomitant]
     Indication: GOUT
     Route: 048
  5. PACERONE [Concomitant]
     Route: 048
  6. IRON [Concomitant]
     Route: 048
  7. DIOVAN HCT [Concomitant]
     Indication: BLOOD PRESSURE INCREASED
     Dosage: 160MG/12.5MG STRENGTH
     Route: 048

REACTIONS (8)
  - BLOOD PRESSURE INCREASED [None]
  - DIZZINESS [None]
  - FEELING ABNORMAL [None]
  - HALLUCINATION [None]
  - HEADACHE [None]
  - MALAISE [None]
  - NAUSEA [None]
  - VOMITING [None]
